FAERS Safety Report 4711696-9 (Version None)
Quarter: 2005Q3

REPORT INFORMATION
  Report Type: 
  Country: None (occurrence: None)
  Receive Date: 20050708
  Receipt Date: 20050708
  Transmission Date: 20060218
  Serious: Yes (Hospitalization)
  Sender: FDA-Public Use
  Company Number: None

PATIENT
  Sex: Male
  Weight: 70.489 kg

DRUGS (5)
  1. PACLITAXEL [Suspect]
     Indication: NEOPLASM MALIGNANT
     Dosage: 40MG/M2 ONCE/WEEK X8 INTRAVENOU
     Route: 042
     Dates: start: 20050516, end: 20050627
  2. CARBOPLATIN [Suspect]
     Indication: NEOPLASM MALIGNANT
     Dosage: AUC 2 ONCE/WEEK X8 INTRAVENOU
     Route: 042
     Dates: start: 20050516, end: 20050627
  3. ZOSYN [Concomitant]
  4. IV MAGNESIUM [Concomitant]
  5. IV FLUIDS [Concomitant]

REACTIONS (9)
  - ANAEMIA [None]
  - ASTHENIA [None]
  - BLOOD MAGNESIUM DECREASED [None]
  - COUGH [None]
  - DYSPHAGIA [None]
  - INFECTION [None]
  - LEUKOPENIA [None]
  - NEUTROPENIA [None]
  - PYREXIA [None]
